FAERS Safety Report 24428322 (Version 17)
Quarter: 2025Q1

REPORT INFORMATION
  Report Type: Report from Study
  Country: CA (occurrence: CA)
  Receive Date: 20241011
  Receipt Date: 20250331
  Transmission Date: 20250409
  Serious: Yes (Life-Threatening, Other)
  Sender: TAKEDA
  Company Number: CA-TAKEDA-2022TUS069270

PATIENT
  Age: 40 Year
  Sex: Female

DRUGS (74)
  1. ICATIBANT [Suspect]
     Active Substance: ICATIBANT ACETATE
     Indication: Hereditary angioedema
  2. ICATIBANT [Suspect]
     Active Substance: ICATIBANT ACETATE
     Indication: Hereditary angioedema with C1 esterase inhibitor deficiency
  3. ICATIBANT [Suspect]
     Active Substance: ICATIBANT ACETATE
  4. ICATIBANT [Suspect]
     Active Substance: ICATIBANT ACETATE
  5. ICATIBANT [Suspect]
     Active Substance: ICATIBANT ACETATE
  6. ICATIBANT [Suspect]
     Active Substance: ICATIBANT ACETATE
  7. ICATIBANT [Suspect]
     Active Substance: ICATIBANT ACETATE
  8. ICATIBANT [Suspect]
     Active Substance: ICATIBANT ACETATE
  9. ICATIBANT [Suspect]
     Active Substance: ICATIBANT ACETATE
  10. ICATIBANT [Suspect]
     Active Substance: ICATIBANT ACETATE
  11. ICATIBANT [Suspect]
     Active Substance: ICATIBANT ACETATE
     Dosage: 10 GRAM, 1/WEEK
  12. ICATIBANT [Suspect]
     Active Substance: ICATIBANT ACETATE
  13. ICATIBANT [Suspect]
     Active Substance: ICATIBANT ACETATE
  14. ICATIBANT [Suspect]
     Active Substance: ICATIBANT ACETATE
  15. ICATIBANT [Suspect]
     Active Substance: ICATIBANT ACETATE
  16. ICATIBANT [Suspect]
     Active Substance: ICATIBANT ACETATE
  17. ICATIBANT [Suspect]
     Active Substance: ICATIBANT ACETATE
  18. ICATIBANT [Suspect]
     Active Substance: ICATIBANT ACETATE
  19. ICATIBANT [Suspect]
     Active Substance: ICATIBANT ACETATE
  20. ICATIBANT [Suspect]
     Active Substance: ICATIBANT ACETATE
  21. ICATIBANT [Suspect]
     Active Substance: ICATIBANT ACETATE
  22. ICATIBANT [Suspect]
     Active Substance: ICATIBANT ACETATE
  23. ICATIBANT [Suspect]
     Active Substance: ICATIBANT ACETATE
  24. ICATIBANT [Suspect]
     Active Substance: ICATIBANT ACETATE
  25. ICATIBANT [Suspect]
     Active Substance: ICATIBANT ACETATE
  26. ICATIBANT [Suspect]
     Active Substance: ICATIBANT ACETATE
  27. ICATIBANT [Suspect]
     Active Substance: ICATIBANT ACETATE
  28. ICATIBANT [Suspect]
     Active Substance: ICATIBANT ACETATE
  29. ICATIBANT [Suspect]
     Active Substance: ICATIBANT ACETATE
  30. ICATIBANT [Suspect]
     Active Substance: ICATIBANT ACETATE
  31. ICATIBANT [Suspect]
     Active Substance: ICATIBANT ACETATE
  32. ICATIBANT [Suspect]
     Active Substance: ICATIBANT ACETATE
  33. ICATIBANT [Suspect]
     Active Substance: ICATIBANT ACETATE
  34. ICATIBANT [Suspect]
     Active Substance: ICATIBANT ACETATE
  35. ICATIBANT [Suspect]
     Active Substance: ICATIBANT ACETATE
  36. ICATIBANT [Suspect]
     Active Substance: ICATIBANT ACETATE
  37. ICATIBANT [Suspect]
     Active Substance: ICATIBANT ACETATE
  38. ICATIBANT [Suspect]
     Active Substance: ICATIBANT ACETATE
  39. ICATIBANT [Suspect]
     Active Substance: ICATIBANT ACETATE
  40. ICATIBANT [Suspect]
     Active Substance: ICATIBANT ACETATE
  41. ICATIBANT [Suspect]
     Active Substance: ICATIBANT ACETATE
  42. ICATIBANT [Suspect]
     Active Substance: ICATIBANT ACETATE
  43. ICATIBANT [Suspect]
     Active Substance: ICATIBANT ACETATE
  44. ICATIBANT [Suspect]
     Active Substance: ICATIBANT ACETATE
  45. ICATIBANT [Suspect]
     Active Substance: ICATIBANT ACETATE
  46. ICATIBANT [Suspect]
     Active Substance: ICATIBANT ACETATE
  47. ICATIBANT [Suspect]
     Active Substance: ICATIBANT ACETATE
  48. ICATIBANT [Suspect]
     Active Substance: ICATIBANT ACETATE
  49. ICATIBANT [Suspect]
     Active Substance: ICATIBANT ACETATE
  50. ICATIBANT [Suspect]
     Active Substance: ICATIBANT ACETATE
  51. TAKHZYRO [Suspect]
     Active Substance: LANADELUMAB-FLYO
     Indication: Hereditary angioedema
     Dosage: UNK UNK, Q2WEEKS
     Dates: start: 20210812
  52. TAKHZYRO [Suspect]
     Active Substance: LANADELUMAB-FLYO
     Indication: Hereditary angioedema with C1 esterase inhibitor deficiency
  53. TAKHZYRO [Suspect]
     Active Substance: LANADELUMAB-FLYO
     Dosage: 2 MILLILITER, Q2WEEKS
  54. TAKHZYRO [Suspect]
     Active Substance: LANADELUMAB-FLYO
     Dosage: 300 MILLIGRAM, Q2WEEKS
  55. LUPRON [Suspect]
     Active Substance: LEUPROLIDE ACETATE
     Indication: Product used for unknown indication
  56. BERINERT [Concomitant]
     Active Substance: HUMAN C1-ESTERASE INHIBITOR
  57. BERINERT [Concomitant]
     Active Substance: HUMAN C1-ESTERASE INHIBITOR
  58. BERINERT [Concomitant]
     Active Substance: HUMAN C1-ESTERASE INHIBITOR
  59. BERINERT [Concomitant]
     Active Substance: HUMAN C1-ESTERASE INHIBITOR
  60. BERINERT [Concomitant]
     Active Substance: HUMAN C1-ESTERASE INHIBITOR
  61. BERINERT [Concomitant]
     Active Substance: HUMAN C1-ESTERASE INHIBITOR
  62. BERINERT [Concomitant]
     Active Substance: HUMAN C1-ESTERASE INHIBITOR
  63. BERINERT [Concomitant]
     Active Substance: HUMAN C1-ESTERASE INHIBITOR
  64. BERINERT [Concomitant]
     Active Substance: HUMAN C1-ESTERASE INHIBITOR
  65. BERINERT [Concomitant]
     Active Substance: HUMAN C1-ESTERASE INHIBITOR
  66. BERINERT [Concomitant]
     Active Substance: HUMAN C1-ESTERASE INHIBITOR
  67. BERINERT [Concomitant]
     Active Substance: HUMAN C1-ESTERASE INHIBITOR
  68. BERINERT [Concomitant]
     Active Substance: HUMAN C1-ESTERASE INHIBITOR
  69. BERINERT [Concomitant]
     Active Substance: HUMAN C1-ESTERASE INHIBITOR
  70. HAEGARDA [Concomitant]
     Active Substance: HUMAN C1-ESTERASE INHIBITOR
     Dosage: 3000 INTERNATIONAL UNIT, 2/WEEK
     Dates: end: 20211013
  71. B 12 [Concomitant]
  72. B 12 [Concomitant]
  73. PREDNISONE [Concomitant]
     Active Substance: PREDNISONE
     Dosage: 30 MILLIGRAM, Q2WEEKS
  74. HIZENTRA [Concomitant]
     Active Substance: HUMAN IMMUNOGLOBULIN G

REACTIONS (17)
  - Hereditary angioedema [Not Recovered/Not Resolved]
  - Fatigue [Unknown]
  - Blood oestrogen increased [Unknown]
  - Post-traumatic stress disorder [Unknown]
  - Suspected COVID-19 [Recovered/Resolved]
  - Stress [Unknown]
  - Drug effect less than expected [Not Recovered/Not Resolved]
  - Malaise [Unknown]
  - Insurance issue [Unknown]
  - Poor venous access [Unknown]
  - Product quality issue [Not Recovered/Not Resolved]
  - Product storage error [Unknown]
  - Product use in unapproved indication [Unknown]
  - COVID-19 [Unknown]
  - Ovarian cyst [Recovered/Resolved]
  - Injection site urticaria [Recovering/Resolving]
  - Injection site pain [Recovering/Resolving]

NARRATIVE: CASE EVENT DATE: 20210812
